FAERS Safety Report 8434631-9 (Version None)
Quarter: 2012Q2

REPORT INFORMATION
  Report Type: 
  Country: None (occurrence: None)
  Receive Date: 20120614
  Receipt Date: 20120610
  Transmission Date: 20120825
  Serious: No
  Sender: FDA-Public Use
  Company Number: US-BIOGENIDEC-2012BI020578

PATIENT
  Age: 50 Year
  Sex: Female

DRUGS (1)
  1. AVONEX [Suspect]
     Indication: MULTIPLE SCLEROSIS
     Route: 030
     Dates: start: 20110421

REACTIONS (4)
  - DIPLOPIA [None]
  - GAIT DISTURBANCE [None]
  - PHOTOPSIA [None]
  - MULTIPLE SCLEROSIS RELAPSE [None]
